FAERS Safety Report 9157575 (Version 1)
Quarter: 2013Q1

REPORT INFORMATION
  Report Type: Spontaneous
  Country: US (occurrence: None)
  Receive Date: 20130311
  Receipt Date: 20130311
  Transmission Date: 20140127
  Serious: Yes (Disabling)
  Sender: FDA-Public Use
  Company Number: None

PATIENT
  Age: 27 Year
  Sex: Female
  Weight: 47.63 kg

DRUGS (2)
  1. KLONOPIN [Suspect]
     Indication: ANXIETY
     Route: 048
     Dates: start: 20120501, end: 20120804
  2. ATIVAN [Concomitant]

REACTIONS (19)
  - Drug tolerance [None]
  - Fear [None]
  - Derealisation [None]
  - Dizziness [None]
  - Malaise [None]
  - Insomnia [None]
  - Obsessive thoughts [None]
  - Depersonalisation [None]
  - Confusional state [None]
  - Amnesia [None]
  - Fatigue [None]
  - Withdrawal syndrome [None]
  - Suicidal ideation [None]
  - Depression [None]
  - Muscle spasms [None]
  - Bladder spasm [None]
  - Photophobia [None]
  - Hyperacusis [None]
  - Anger [None]
